FAERS Safety Report 7270802-5 (Version None)
Quarter: 2011Q1

REPORT INFORMATION
  Report Type: 
  Country: None (occurrence: None)
  Receive Date: 20110202
  Receipt Date: 20110124
  Transmission Date: 20110831
  Serious: Yes (Hospitalization)
  Sender: FDA-Public Use
  Company Number: FR-ASTRAZENECA-2011SE04271

PATIENT
  Age: 74 Year
  Sex: Male

DRUGS (7)
  1. KARDEGIC [Suspect]
     Dosage: LONG LASTING
     Route: 048
  2. LANTUS [Concomitant]
     Indication: INSULIN-REQUIRING TYPE 2 DIABETES MELLITUS
     Dosage: LONG LASTING
     Route: 058
  3. NOVORAPID [Concomitant]
     Indication: INSULIN-REQUIRING TYPE 2 DIABETES MELLITUS
     Dosage: LONG LASTING
     Route: 058
  4. ZESTRIL [Concomitant]
     Dosage: LONG LASTING
     Route: 048
  5. ESIDRIX [Concomitant]
     Indication: HYPERTENSION
     Dosage: LONG LASTING
     Route: 048
  6. CRESTOR [Suspect]
     Dosage: LONG LASTING
     Route: 048
  7. COUMADIN [Suspect]
     Indication: ANGIOPLASTY
     Route: 048
     Dates: start: 20100920, end: 20101007

REACTIONS (1)
  - MELAENA [None]
